FAERS Safety Report 8618543-3 (Version None)
Quarter: 2012Q3

REPORT INFORMATION
  Report Type: 
  Country: None (occurrence: None)
  Receive Date: 20120824
  Receipt Date: 20120817
  Transmission Date: 20120928
  Serious: No
  Sender: FDA-Public Use
  Company Number: US-PFIZER INC-2012202425

PATIENT
  Age: 63 Year
  Sex: Female
  Weight: 54 kg

DRUGS (2)
  1. FLECTOR [Suspect]
     Indication: FRACTURED COCCYX
     Dosage: UNK, 2X/DAY (1 PATCH EVERY 12 HOURS)
     Dates: start: 20120813
  2. TYLENOL [Suspect]
     Dosage: UNK
     Route: 048

REACTIONS (2)
  - ABDOMINAL DISCOMFORT [None]
  - ABDOMINAL PAIN UPPER [None]
